FAERS Safety Report 8259951-2 (Version None)
Quarter: 2012Q2

REPORT INFORMATION
  Report Type: 
  Country: None (occurrence: None)
  Receive Date: 20120404
  Receipt Date: 20120402
  Transmission Date: 20120825
  Serious: Yes (Death)
  Sender: FDA-Public Use
  Company Number: AU-B.I. PHARMACEUTICALS,INC./RIDGEFIELD-2012-AU-00603AU

PATIENT
  Sex: Male

DRUGS (6)
  1. PRADAXA [Suspect]
     Indication: ATRIAL FIBRILLATION
  2. METFORMIN HCL [Concomitant]
  3. INSULIN [Concomitant]
     Dates: start: 20110820, end: 20111101
  4. AVAPRO [Concomitant]
     Dates: end: 20111101
  5. ZOLADEX [Concomitant]
     Dates: end: 20111101
  6. PRADAXA [Suspect]
     Indication: CEREBROVASCULAR ACCIDENT PROPHYLAXIS
     Dates: start: 20110830, end: 20111101

REACTIONS (1)
  - NEOPLASM MALIGNANT [None]
